FAERS Safety Report 9855293 (Version 2)
Quarter: 2014Q1

REPORT INFORMATION
  Report Type: Spontaneous
  Country: GB (occurrence: GB)
  Receive Date: 20140130
  Receipt Date: 20140130
  Transmission Date: 20141002
  Serious: Yes (Other)
  Sender: FDA-Public Use
  Company Number: GB-MYLANLABS-2013S1022575

PATIENT
  Age: 78 Year
  Sex: Male

DRUGS (2)
  1. TERBINAFINE [Suspect]
     Indication: TINEA INFECTION
     Route: 048
     Dates: start: 20130808, end: 20130828
  2. TERBINAFINE [Suspect]
     Indication: TINEA INFECTION
     Dates: start: 20130914, end: 20130916

REACTIONS (4)
  - Stevens-Johnson syndrome [Unknown]
  - Eczema [Recovered/Resolved]
  - Insomnia [Not Recovered/Not Resolved]
  - Stress [Unknown]
